FAERS Safety Report 11579256 (Version 1)
Quarter: 2015Q3

REPORT INFORMATION
  Report Type: Spontaneous
  Country: US (occurrence: US)
  Receive Date: 20150930
  Receipt Date: 20150930
  Transmission Date: 20151125
  Serious: No
  Sender: FDA-Public Use
  Company Number: US-PFIZER INC-2015323955

PATIENT
  Age: 53 Year
  Sex: Male
  Weight: 81.63 kg

DRUGS (3)
  1. LYRICA [Suspect]
     Active Substance: PREGABALIN
     Indication: HYPOAESTHESIA
     Dosage: 300 MG, 1X/DAY
     Route: 048
     Dates: start: 20150917
  2. METFORMIN [Concomitant]
     Active Substance: METFORMIN HYDROCHLORIDE
     Dosage: 1000 MG, 2X/DAY
  3. GLIMEPIRIDE. [Concomitant]
     Active Substance: GLIMEPIRIDE
     Dosage: 4 MG, 2X/DAY

REACTIONS (5)
  - Vision blurred [Unknown]
  - Peripheral swelling [Not Recovered/Not Resolved]
  - Burning sensation [Unknown]
  - Dyspnoea [Unknown]
  - Drug intolerance [Unknown]
